FAERS Safety Report 16313980 (Version 2)
Quarter: 2019Q2

REPORT INFORMATION
  Report Type: Report from Study
  Country: DE (occurrence: DE)
  Receive Date: 20190515
  Receipt Date: 20190522
  Transmission Date: 20190711
  Serious: Yes (Hospitalization)
  Sender: FDA-Public Use
  Company Number: DE-ROCHE-2316819

PATIENT
  Age: 47 Year
  Sex: Male
  Weight: 84 kg

DRUGS (6)
  1. OXALIPLATIN. [Suspect]
     Active Substance: OXALIPLATIN
     Indication: GASTRIC CANCER
     Dosage: OVER 2 HOURS?LAST DOSE ADMINISTERRED ON 07/MAY/2019 PRIOR TO EVENT- 180 MG
     Route: 042
  2. FLUOROURACIL. [Suspect]
     Active Substance: FLUOROURACIL
     Indication: GASTRIC CANCER
     Dosage: OVER 24 HOURS?LAST DOSE ADMINISTERED ON 04/FEB/2019 PRIOR TO EVENT - 5800 MG
     Route: 042
  3. ATEZOLIZUMAB. [Suspect]
     Active Substance: ATEZOLIZUMAB
     Indication: GASTRIC CANCER
     Dosage: OVER 1 HOUR FOR 4 CYCLES?LAST DOSE ADMINISTERED ON 07/MAY/2019 PRIOR TO EVENT- 840 MG
     Route: 042
  4. LEUCOVORIN [FOLINIC ACID] [Suspect]
     Active Substance: LEUCOVORIN
     Indication: GASTRIC CANCER
     Dosage: OVER 2 HOURS?LAST DOSE ADMINISTERED ON 07/MAY/2019 PRIOR TO EVENT- 430 MG
     Route: 042
  5. ATEZOLIZUMAB. [Suspect]
     Active Substance: ATEZOLIZUMAB
     Dosage: OVER 1 HOUR MAINTAINANCE DOSE ?8 ADDITIONAL 3-WEEK TREATMENT CYCLES
     Route: 042
  6. DOCETAXEL. [Suspect]
     Active Substance: DOCETAXEL
     Indication: GASTRIC CANCER
     Dosage: OVER 2 HOURS?LAST DOSE ADMINISTERRED ON 07/MAY/2019 PRIOR TO EVENT- 108 MG
     Route: 042

REACTIONS (1)
  - Chills [Recovered/Resolved]

NARRATIVE: CASE EVENT DATE: 20190507
